FAERS Safety Report 8762974 (Version 1)
Quarter: 2012Q4

REPORT INFORMATION
  Report Type: Spontaneous
  Country: US (occurrence: None)
  Receive Date: 20120830
  Receipt Date: 20120830
  Transmission Date: 20130627
  Serious: Yes (Hospitalization)
  Sender: FDA-Public Use
  Company Number: None

PATIENT
  Age: 55 Year
  Sex: Male

DRUGS (1)
  1. METHADONE [Suspect]
     Route: 048
     Dates: start: 20120430, end: 20120509

REACTIONS (1)
  - Electrocardiogram QT prolonged [None]
